FAERS Safety Report 15289551 (Version 1)
Quarter: 2018Q3

REPORT INFORMATION
  Report Type: Spontaneous
  Country: US (occurrence: US)
  Receive Date: 20180817
  Receipt Date: 20180817
  Transmission Date: 20181010
  Serious: Yes (Other)
  Sender: FDA-Public Use
  Company Number: US-UNITED THERAPEUTICS-UNT-2018-012892

PATIENT
  Sex: Male

DRUGS (1)
  1. REMODULIN [Suspect]
     Active Substance: TREPROSTINIL
     Indication: PRODUCT USED FOR UNKNOWN INDICATION
     Dosage: 0.023 ?G/KG, CONTINUING
     Route: 041
     Dates: start: 20160610

REACTIONS (2)
  - Acne [Unknown]
  - Skin irritation [Unknown]

NARRATIVE: CASE EVENT DATE: 201606
